FAERS Safety Report 4900167-2 (Version None)
Quarter: 2006Q1

REPORT INFORMATION
  Report Type: 
  Country: None (occurrence: None)
  Receive Date: 20060203
  Receipt Date: 20050228
  Transmission Date: 20060701
  Serious: No
  Sender: FDA-Public Use
  Company Number: US-GLAXOSMITHKLINE-A0547583A

PATIENT

DRUGS (1)
  1. ARIXTRA [Suspect]

REACTIONS (1)
  - WOUND SECRETION [None]
